FAERS Safety Report 6158173-9 (Version None)
Quarter: 2009Q2

REPORT INFORMATION
  Report Type: 
  Country: None (occurrence: None)
  Receive Date: 20090417
  Receipt Date: 20080730
  Transmission Date: 20091009
  Serious: No
  Sender: FDA-Public Use
  Company Number: US-AMGEN-US298296

PATIENT
  Sex: Male

DRUGS (1)
  1. SENSIPAR [Suspect]
     Indication: HYPERPARATHYROIDISM PRIMARY
     Route: 065
     Dates: start: 20080729

REACTIONS (4)
  - BONE PAIN [None]
  - DIZZINESS [None]
  - NAUSEA [None]
  - POLLAKIURIA [None]
